FAERS Safety Report 16285932 (Version 1)
Quarter: 2019Q2

REPORT INFORMATION
  Report Type: Spontaneous
  Country: US (occurrence: US)
  Receive Date: 20190508
  Receipt Date: 20190508
  Transmission Date: 20190711
  Serious: No
  Sender: FDA-Public Use
  Company Number: US-FDC LIMITED-2019RIS00069

PATIENT
  Sex: Female

DRUGS (2)
  1. TIMOLOL MALEATE. [Suspect]
     Active Substance: TIMOLOL MALEATE
     Indication: GLAUCOMA
     Dosage: UNK UNK, 2X/DAY
     Route: 047
  2. CLEAR CARE TRIPLE ACTION CONTACT LENS SOLUTION W/ 3% HYDROGEN PEROXIDE [Suspect]
     Active Substance: HYDROGEN PEROXIDE
     Dosage: UNK

REACTIONS (5)
  - Eye disorder [Not Recovered/Not Resolved]
  - Eye irritation [Not Recovered/Not Resolved]
  - Ocular hyperaemia [Not Recovered/Not Resolved]
  - Visual impairment [Not Recovered/Not Resolved]
  - Eye pain [Not Recovered/Not Resolved]

NARRATIVE: CASE EVENT DATE: 20190205
